FAERS Safety Report 9786652 (Version 1)
Quarter: 2013Q4

REPORT INFORMATION
  Report Type: Spontaneous
  Country: CA (occurrence: CA)
  Receive Date: 20131227
  Receipt Date: 20131227
  Transmission Date: 20140711
  Serious: Yes (Hospitalization)
  Sender: FDA-Public Use
  Company Number: CA-MYLANLABS-2013S1028466

PATIENT
  Age: 71 Year
  Sex: Male

DRUGS (3)
  1. FORMOTEROL W/BUDESONIDE [Suspect]
     Indication: ASTHMA
     Dosage: 400 MCG/DAY OF BUDESONIDE
     Route: 050
  2. FORMOTEROL W/BUDESONIDE [Interacting]
     Indication: ASTHMA
     Dosage: 800 MCG/DAY OF BUDESONIDE
     Route: 050
  3. ITRACONAZOLE [Interacting]
     Indication: BRONCHOPULMONARY ASPERGILLOSIS
     Dosage: 400 MG/DAY
     Route: 048
     Dates: start: 2006

REACTIONS (4)
  - Cushing^s syndrome [Unknown]
  - Drug interaction [Unknown]
  - Secondary adrenocortical insufficiency [Unknown]
  - Osteonecrosis [Unknown]
